FAERS Safety Report 18658616 (Version 1)
Quarter: 2020Q4

REPORT INFORMATION
  Report Type: Spontaneous
  Country: US (occurrence: US)
  Receive Date: 20201224
  Receipt Date: 20201224
  Transmission Date: 20210114
  Serious: No
  Sender: FDA-Public Use
  Company Number: US-CELGENEUS-USA-20201204469

PATIENT
  Age: 58 Year
  Sex: Male
  Weight: 161.62 kg

DRUGS (1)
  1. REVLIMID [Suspect]
     Active Substance: LENALIDOMIDE
     Indication: PLASMA CELL MYELOMA IN REMISSION
     Dosage: 15 MILLIGRAM
     Route: 048
     Dates: start: 201809

REACTIONS (2)
  - Unevaluable event [Unknown]
  - Infection [Unknown]

NARRATIVE: CASE EVENT DATE: 20201208
